FAERS Safety Report 24014015 (Version 1)
Quarter: 2024Q2

REPORT INFORMATION
  Report Type: Report from Study
  Country: US (occurrence: US)
  Receive Date: 20240626
  Receipt Date: 20240626
  Transmission Date: 20240716
  Serious: Yes (Other)
  Sender: FDA-Public Use
  Company Number: US-ABBVIE-5813153

PATIENT
  Sex: Male

DRUGS (2)
  1. SKYRIZI [Suspect]
     Active Substance: RISANKIZUMAB-RZAA
     Indication: Psoriasis
     Dosage: FORM STRENGTH: 150MG
     Route: 058
     Dates: start: 20240210
  2. SKYRIZI [Suspect]
     Active Substance: RISANKIZUMAB-RZAA
     Dosage: FORM STRENGTH: 150MG?FREQUENCY TEXT: WEEK 0
     Route: 058
     Dates: start: 20231213, end: 20231213

REACTIONS (3)
  - Hepatic cirrhosis [Unknown]
  - Gastrointestinal disorder [Unknown]
  - Chills [Unknown]
